FAERS Safety Report 15186717 (Version 2)
Quarter: 2019Q1

REPORT INFORMATION
  Report Type: Report from Study
  Country: US (occurrence: US)
  Receive Date: 20180723
  Receipt Date: 20190130
  Transmission Date: 20190417
  Serious: No
  Sender: FDA-Public Use
  Company Number: US-EXELIXIS-CABO-18012895

PATIENT
  Age: 57 Year
  Sex: Male

DRUGS (10)
  1. METRONIDAZOL [Concomitant]
     Active Substance: METRONIDAZOLE
  2. BUPROPION HCL [Concomitant]
     Active Substance: BUPROPION HYDROCHLORIDE
  3. CABOMETYX [Suspect]
     Active Substance: CABOZANTINIB S-MALATE
     Indication: DIFFUSE LARGE B-CELL LYMPHOMA
     Dosage: 60 MG, QD
     Route: 048
     Dates: start: 20180308
  4. CLOBETASOL [Concomitant]
     Active Substance: CLOBETASOL
  5. ELIQUIS [Concomitant]
     Active Substance: APIXABAN
  6. BENAZEPRIL [Concomitant]
     Active Substance: BENAZEPRIL HYDROCHLORIDE
  7. CABOMETYX [Suspect]
     Active Substance: CABOZANTINIB S-MALATE
     Indication: RENAL CELL CARCINOMA
     Dosage: 60 MG, QD
     Route: 048
     Dates: start: 20171028
  8. BUSPIRON [Concomitant]
     Active Substance: BUSPIRONE HYDROCHLORIDE
  9. METOCLOPRAM [Concomitant]
     Active Substance: METOCLOPRAMIDE
  10. OXYCODONE/APAP [Concomitant]
     Active Substance: ACETAMINOPHEN\OXYCODONE HYDROCHLORIDE

REACTIONS (5)
  - Skin disorder [Recovered/Resolved]
  - Blister [Not Recovered/Not Resolved]
  - Nausea [Not Recovered/Not Resolved]
  - Drug ineffective [Unknown]
  - Decreased appetite [Not Recovered/Not Resolved]

NARRATIVE: CASE EVENT DATE: 20180303
